FAERS Safety Report 8436669-4 (Version None)
Quarter: 2012Q2

REPORT INFORMATION
  Report Type: 
  Country: None (occurrence: None)
  Receive Date: 20120614
  Receipt Date: 20120605
  Transmission Date: 20120825
  Serious: Yes (Other)
  Sender: FDA-Public Use
  Company Number: AR-JNJFOC-20120604004

PATIENT
  Age: 72 Year
  Sex: Female

DRUGS (3)
  1. METHOTREXATE [Concomitant]
     Indication: RHEUMATOID ARTHRITIS
     Route: 065
  2. BETAMETHASONE [Concomitant]
     Indication: RHEUMATOID ARTHRITIS
     Route: 065
  3. INFLIXIMAB, RECOMBINANT [Suspect]
     Indication: RHEUMATOID ARTHRITIS
     Dosage: FIRST DOSE ADMINISTERED ON 03-MAY
     Route: 042

REACTIONS (6)
  - CONJUNCTIVAL HYPERAEMIA [None]
  - BRONCHIAL DISORDER [None]
  - HOT FLUSH [None]
  - SPEECH DISORDER [None]
  - OROPHARYNGEAL PAIN [None]
  - INFUSION RELATED REACTION [None]
